FAERS Safety Report 19907334 (Version 1)
Quarter: 2021Q3

REPORT INFORMATION
  Report Type: Spontaneous
  Country: US (occurrence: US)
  Receive Date: 20210930
  Receipt Date: 20210930
  Transmission Date: 20211014
  Serious: Yes (Other)
  Sender: FDA-Public Use
  Company Number: US-FOUNDATIONCONSUMERHC-2021-US-020757

PATIENT
  Age: 29 Year
  Sex: Female
  Weight: 86.18 kg

DRUGS (1)
  1. PLAN B ONE?STEP [Suspect]
     Active Substance: LEVONORGESTREL
     Indication: POST COITAL CONTRACEPTION
     Dosage: 1.5MG
     Route: 048
     Dates: start: 202102, end: 202102

REACTIONS (3)
  - Pregnancy after post coital contraception [Recovered/Resolved]
  - Abortion spontaneous [Recovered/Resolved]
  - Drug ineffective [Recovered/Resolved]

NARRATIVE: CASE EVENT DATE: 202102
